FAERS Safety Report 25901184 (Version 2)
Quarter: 2025Q4

REPORT INFORMATION
  Report Type: Spontaneous
  Country: US (occurrence: US)
  Receive Date: 20251009
  Receipt Date: 20251028
  Transmission Date: 20260117
  Serious: Yes (Hospitalization)
  Sender: Krystal Biotech
  Company Number: US-KRYSTAL BIOTECH NETHERLANDS B.V-2025KRYUS00170

PATIENT
  Age: 1 Year
  Sex: Male

DRUGS (1)
  1. VYJUVEK [Suspect]
     Active Substance: BEREMAGENE GEPERPAVEC-SVDT
     Indication: Epidermolysis bullosa
     Dosage: UNK
     Route: 061
     Dates: start: 20250217

REACTIONS (1)
  - Epidermolysis bullosa [Recovered/Resolved]
